FAERS Safety Report 18583202 (Version 2)
Quarter: 2020Q4

REPORT INFORMATION
  Report Type: Spontaneous
  Country: US (occurrence: US)
  Receive Date: 20201206
  Receipt Date: 20201223
  Transmission Date: 20210114
  Serious: Yes (Other)
  Sender: FDA-Public Use
  Company Number: US-SERVIER-S20012197

PATIENT

DRUGS (2)
  1. ONCASPAR [Suspect]
     Active Substance: PEGASPARGASE
     Indication: NON-HODGKIN^S LYMPHOMA
     Dosage: UNK
     Route: 042
     Dates: start: 20200706
  2. ONCASPAR [Suspect]
     Active Substance: PEGASPARGASE
     Dosage: PLANNED DOSE 3750 IU, QD
     Route: 042
     Dates: start: 20201021, end: 20201021

REACTIONS (1)
  - Hypersensitivity [Recovered/Resolved]

NARRATIVE: CASE EVENT DATE: 20201021
